FAERS Safety Report 7237125-1 (Version None)
Quarter: 2011Q1

REPORT INFORMATION
  Report Type: 
  Country: None (occurrence: None)
  Receive Date: 20110121
  Receipt Date: 20101129
  Transmission Date: 20110831
  Serious: Yes (Hospitalization, Other)
  Sender: FDA-Public Use
  Company Number: US-BAYER-201033254NA

PATIENT
  Sex: Female
  Weight: 77 kg

DRUGS (9)
  1. IBUPROFEN [Concomitant]
  2. BENTYL [Concomitant]
  3. YAZ [Suspect]
     Indication: PRODUCT USED FOR UNKNOWN INDICATION
     Route: 048
     Dates: start: 20060101
  4. SYNTHROID [Concomitant]
  5. VICODIN [Concomitant]
  6. LEVOXYL [Concomitant]
  7. ORTHO TRI-CYCLEN [Concomitant]
     Indication: ORAL CONTRACEPTION
     Route: 048
     Dates: start: 20030101, end: 20040615
  8. ORTHO TRI-CYCLEN [Concomitant]
     Dosage: UNK
     Route: 048
  9. YAZ [Suspect]
     Route: 048
     Dates: start: 20070701, end: 20080801

REACTIONS (11)
  - GALLBLADDER CHOLESTEROLOSIS [None]
  - COSTOVERTEBRAL ANGLE TENDERNESS [None]
  - FLANK PAIN [None]
  - DIARRHOEA [None]
  - CHOLECYSTITIS CHRONIC [None]
  - NAUSEA [None]
  - GALLBLADDER POLYP [None]
  - ABDOMINAL PAIN [None]
  - ABDOMINAL DISCOMFORT [None]
  - VOMITING [None]
  - ABDOMINAL PAIN UPPER [None]
